FAERS Safety Report 5877285-8 (Version None)
Quarter: 2008Q3

REPORT INFORMATION
  Report Type: 
  Country: None (occurrence: None)
  Receive Date: 20080903
  Receipt Date: 20080826
  Transmission Date: 20090109
  Serious: No
  Sender: FDA-Public Use
  Company Number: 200813983

PATIENT
  Age: 6 Year
  Sex: Female
  Weight: 22 kg

DRUGS (4)
  1. HAEMATE P HAEMATE P    (FACTOR VIII (ANTIHAEMOPHILLIC FACTOR)) [Suspect]
     Indication: IMMUNE ENHANCEMENT THERAPY
     Dosage: 4000 IU DAILY IV
     Route: 042
  2. DEXAMETHASON /00016001/ [Concomitant]
  3. CELLCEPT [Concomitant]
  4. OCTAGAM /00025201/ [Concomitant]

REACTIONS (4)
  - ALANINE AMINOTRANSFERASE INCREASED [None]
  - ANTI FACTOR VIII ANTIBODY POSITIVE [None]
  - ASPARTATE AMINOTRANSFERASE INCREASED [None]
  - VON WILLEBRAND'S FACTOR ANTIBODY POSITIVE [None]
